FAERS Safety Report 10535311 (Version 2)
Quarter: 2014Q4

REPORT INFORMATION
  Report Type: Report from Study
  Country: CA (occurrence: CA)
  Receive Date: 20141022
  Receipt Date: 20141022
  Transmission Date: 20150529
  Serious: Yes (Other)
  Sender: FDA-Public Use
  Company Number: PHHY2014CA086862

PATIENT
  Age: 42 Year
  Sex: Male

DRUGS (1)
  1. GILENYA [Suspect]
     Active Substance: FINGOLIMOD HYDROCHLORIDE
     Indication: RELAPSING-REMITTING MULTIPLE SCLEROSIS
     Dosage: 0.5 MG, QD
     Route: 048
     Dates: start: 20140711, end: 20140714

REACTIONS (12)
  - Palpitations [Recovered/Resolved]
  - Dyspnoea [Unknown]
  - Malaise [Unknown]
  - Decreased appetite [Unknown]
  - Tremor [Unknown]
  - Hyperhidrosis [Unknown]
  - Fatigue [Unknown]
  - Myocardial infarction [Unknown]
  - Sleep disorder [Unknown]
  - Asthenia [Unknown]
  - Chest discomfort [Unknown]
  - Pain in extremity [Unknown]

NARRATIVE: CASE EVENT DATE: 20140712
